FAERS Safety Report 4439947-9 (Version None)
Quarter: 2004Q3

REPORT INFORMATION
  Report Type: 
  Country: None (occurrence: None)
  Receive Date: 20040902
  Receipt Date: 20040827
  Transmission Date: 20050211
  Serious: Yes (Death)
  Sender: FDA-Public Use
  Company Number: CA-JNJFOC-20040809453

PATIENT
  Sex: Male

DRUGS (11)
  1. RISPERDAL [Suspect]
     Dates: start: 20040319, end: 20040325
  2. RISPERDAL [Suspect]
     Indication: AGITATION
     Dates: start: 20040319, end: 20040325
  3. KALETRA [Interacting]
     Dates: start: 20040312, end: 20040325
  4. KALETRA [Interacting]
     Indication: HIV INFECTION
     Dates: start: 20040312, end: 20040325
  5. COMBIVIR [Concomitant]
  6. COMBIVIR [Concomitant]
  7. DILANTIN [Concomitant]
  8. SEPTRA DS [Concomitant]
  9. SEPTRA DS [Concomitant]
  10. ZITHROMAX [Concomitant]
  11. ATIVAN [Concomitant]

REACTIONS (4)
  - DRUG INTERACTION [None]
  - NEUROLEPTIC MALIGNANT SYNDROME [None]
  - PNEUMONIA ASPIRATION [None]
  - SEPSIS [None]
